FAERS Safety Report 21996470 (Version 1)
Quarter: 2023Q1

REPORT INFORMATION
  Report Type: Spontaneous
  Country: US (occurrence: US)
  Receive Date: 20230215
  Receipt Date: 20230215
  Transmission Date: 20230418
  Serious: Yes (Other)
  Sender: FDA-Public Use
  Company Number: US-FreseniusKabi-FK202301815

PATIENT
  Age: 68 Year
  Sex: Male

DRUGS (3)
  1. ROCURONIUM [Suspect]
     Active Substance: ROCURONIUM BROMIDE
     Indication: Neuromuscular blockade
  2. MIDAZOLAM [Concomitant]
     Active Substance: MIDAZOLAM
     Indication: Neuromuscular blockade
  3. KETAMINE [Concomitant]
     Active Substance: KETAMINE
     Indication: Neuromuscular blockade

REACTIONS (5)
  - Cardiac arrest [Recovered/Resolved]
  - Product administration error [Unknown]
  - Hypotension [Recovered/Resolved]
  - Therapeutic product effect prolonged [Recovered/Resolved]
  - Infusion site extravasation [Unknown]
